FAERS Safety Report 21016140 (Version 3)
Quarter: 2022Q3

REPORT INFORMATION
  Report Type: Report from Study
  Country: US (occurrence: US)
  Receive Date: 20220628
  Receipt Date: 20220823
  Transmission Date: 20221027
  Serious: No
  Sender: FDA-Public Use
  Company Number: US-NOVARTISTESTPH-NVSC2022US147308

PATIENT
  Age: 59 Year
  Sex: Female

DRUGS (4)
  1. ILARIS [Suspect]
     Active Substance: CANAKINUMAB
     Indication: Juvenile idiopathic arthritis
     Dosage: 150 MG, EVERY 4 WEEKS
     Route: 058
     Dates: start: 20181002
  2. ILARIS [Suspect]
     Active Substance: CANAKINUMAB
     Dosage: UNK
     Route: 065
     Dates: start: 20191014
  3. ILARIS [Suspect]
     Active Substance: CANAKINUMAB
     Dosage: 150 MG. EVERY 4 WEEKS
     Route: 058
  4. ILARIS [Suspect]
     Active Substance: CANAKINUMAB
     Dosage: 50 MG, EVERY 4 WEEKS
     Route: 058
     Dates: start: 20220625

REACTIONS (6)
  - SARS-CoV-2 test positive [Recovered/Resolved]
  - Rash [Unknown]
  - Pain in extremity [Recovered/Resolved]
  - Erythema [Recovered/Resolved]
  - Oedema peripheral [Recovered/Resolved]
  - Peripheral swelling [Recovered/Resolved]

NARRATIVE: CASE EVENT DATE: 20220618
